FAERS Safety Report 5708182-6 (Version None)
Quarter: 2008Q2

REPORT INFORMATION
  Report Type: 
  Country: None (occurrence: None)
  Receive Date: 20080417
  Receipt Date: 20080411
  Transmission Date: 20081010
  Serious: Yes (Hospitalization)
  Sender: FDA-Public Use
  Company Number: B0516950A

PATIENT
  Age: 0 Day
  Sex: Male

DRUGS (2)
  1. COMBIVIR [Suspect]
     Indication: RETROVIRAL INFECTION
  2. KALETRA [Suspect]
     Indication: RETROVIRAL INFECTION

REACTIONS (3)
  - CATARACT CONGENITAL [None]
  - CATARACT OPERATION [None]
  - DRUG EXPOSURE DURING PREGNANCY [None]
